FAERS Safety Report 7749037-5 (Version None)
Quarter: 2011Q3

REPORT INFORMATION
  Report Type: 
  Country: None (occurrence: None)
  Receive Date: 20110914
  Receipt Date: 20110907
  Transmission Date: 20111222
  Serious: Yes (Hospitalization)
  Sender: FDA-Public Use
  Company Number: US-JNJFOC-20110903431

PATIENT
  Age: 69 Year
  Sex: Male
  Weight: 79.92 kg

DRUGS (8)
  1. BORTEZOMIB [Suspect]
     Dosage: CYCLE 2 ON DAY 4
     Route: 042
  2. DOXORUBICIN HCL [Suspect]
     Dosage: CYCLE 2 ON DAY 4
     Route: 042
  3. DOXORUBICIN HCL [Suspect]
     Dosage: CYCLE 4, ON DAY 11
     Route: 042
     Dates: start: 20110721
  4. BORTEZOMIB [Suspect]
     Dosage: CYCLE 3 ON DAY 8
     Route: 042
  5. BORTEZOMIB [Suspect]
     Indication: MULTIPLE MYELOMA
     Dosage: CYCLE 1 ON DAY 1
     Route: 042
     Dates: start: 20110426
  6. DOXORUBICIN HCL [Suspect]
     Indication: MULTIPLE MYELOMA
     Dosage: CYCLE 1 ON DAY 1
     Route: 042
     Dates: start: 20110426
  7. DOXORUBICIN HCL [Suspect]
     Dosage: CYCLE 3 ON DAY 8
     Route: 042
  8. BORTEZOMIB [Suspect]
     Dosage: CYCLE 4 ON DAY 11
     Route: 042
     Dates: start: 20110721

REACTIONS (2)
  - CHEST PAIN [None]
  - BLOOD CREATININE INCREASED [None]
